FAERS Safety Report 6219724-9 (Version None)
Quarter: 2009Q2

REPORT INFORMATION
  Report Type: 
  Country: None (occurrence: None)
  Receive Date: 20090609
  Receipt Date: 20090525
  Transmission Date: 20091009
  Serious: Yes (Hospitalization)
  Sender: FDA-Public Use
  Company Number: AU-JNJFOC-20090507049

PATIENT
  Sex: Male
  Weight: 2.98 kg

DRUGS (4)
  1. TOPAMAX [Suspect]
     Indication: DRUG EXPOSURE DURING PREGNANCY
  2. LAMOTRIGINE [Concomitant]
     Indication: DRUG EXPOSURE DURING PREGNANCY
     Route: 064
  3. FOLIC ACID [Concomitant]
     Indication: DRUG EXPOSURE DURING PREGNANCY
     Route: 048
  4. VITAMIN B COMPLEX CAP [Concomitant]
     Indication: DRUG EXPOSURE DURING PREGNANCY
     Route: 048

REACTIONS (2)
  - POOR SUCKING REFLEX [None]
  - SOMNOLENCE [None]
